FAERS Safety Report 8569418-X (Version None)
Quarter: 2012Q3

REPORT INFORMATION
  Report Type: 
  Country: None (occurrence: None)
  Receive Date: 20120803
  Receipt Date: 20120213
  Transmission Date: 20120928
  Serious: No
  Sender: FDA-Public Use
  Company Number: US-ABBOTT-12P-163-0898581-00

PATIENT
  Sex: Female
  Weight: 72.64 kg

DRUGS (8)
  1. COMPOUNDED HORMONE REPLACEMENT THERAPY [Concomitant]
     Indication: PRODUCT USED FOR UNKNOWN INDICATION
  2. NIASPAN [Suspect]
     Indication: LOW DENSITY LIPOPROTEIN INCREASED
  3. ASPIRIN [Concomitant]
     Indication: PRODUCT USED FOR UNKNOWN INDICATION
     Dosage: AT BEDTIME
     Route: 048
  4. COMPOUNDED T3 AND T4 THYROID HORMONE [Concomitant]
     Indication: PRODUCT USED FOR UNKNOWN INDICATION
  5. NIASPAN [Suspect]
     Indication: BLOOD TRIGLYCERIDES INCREASED
     Dosage: BEDTIME; DECREASED 500MG; BACK TO 1000MG
     Route: 048
     Dates: start: 20090201, end: 20120201
  6. AMBIEN [Concomitant]
     Indication: INSOMNIA
  7. STEROID [Concomitant]
     Indication: ASTHMA
  8. ALBUTEROL [Concomitant]
     Indication: PRODUCT USED FOR UNKNOWN INDICATION

REACTIONS (10)
  - CHEST PAIN [None]
  - NASOPHARYNGITIS [None]
  - MUSCULOSKELETAL PAIN [None]
  - NAUSEA [None]
  - NECK PAIN [None]
  - FALL [None]
  - GASTRIC ULCER [None]
  - ABDOMINAL PAIN UPPER [None]
  - BLOOD GLUCOSE INCREASED [None]
  - ARTHRALGIA [None]
